FAERS Safety Report 18926179 (Version 1)
Quarter: 2021Q1

REPORT INFORMATION
  Report Type: Spontaneous
  Country: CN (occurrence: CN)
  Receive Date: 20210223
  Receipt Date: 20210223
  Transmission Date: 20210420
  Serious: Yes (Hospitalization)
  Sender: FDA-Public Use
  Company Number: CN-ROCHE-2772796

PATIENT
  Age: 68 Year
  Sex: Male
  Weight: 60 kg

DRUGS (5)
  1. TECENTRIQ [Suspect]
     Active Substance: ATEZOLIZUMAB
     Indication: LUNG ADENOCARCINOMA
     Route: 041
     Dates: start: 20180607, end: 20180809
  2. CISPLATIN. [Concomitant]
     Active Substance: CISPLATIN
     Dates: start: 20180607, end: 20180809
  3. PEMETREXED. [Concomitant]
     Active Substance: PEMETREXED
     Dates: start: 20180831, end: 20201023
  4. TECENTRIQ [Suspect]
     Active Substance: ATEZOLIZUMAB
     Route: 041
     Dates: start: 20180831, end: 20201023
  5. PEMETREXED. [Concomitant]
     Active Substance: PEMETREXED
     Dates: start: 20180607, end: 20180809

REACTIONS (1)
  - Myelosuppression [Recovering/Resolving]

NARRATIVE: CASE EVENT DATE: 20201229
